FAERS Safety Report 16393964 (Version 1)
Quarter: 2019Q2

REPORT INFORMATION
  Report Type: Spontaneous
  Country: DE (occurrence: DE)
  Receive Date: 20190605
  Receipt Date: 20190605
  Transmission Date: 20190711
  Serious: Yes (Hospitalization)
  Sender: FDA-Public Use
  Company Number: DE-TEVA-2019-DE-1057719

PATIENT
  Age: 15 Year
  Sex: Female
  Weight: 49 kg

DRUGS (1)
  1. MCP ABZ 1 MG/ML [Suspect]
     Active Substance: METOCLOPRAMIDE
     Route: 048
     Dates: start: 20190203, end: 20190204

REACTIONS (4)
  - Dysphemia [Recovering/Resolving]
  - Pharyngeal disorder [Recovering/Resolving]
  - Dyspnoea [Recovering/Resolving]
  - Dyskinesia [Recovering/Resolving]

NARRATIVE: CASE EVENT DATE: 20190203
